FAERS Safety Report 6844631-8 (Version None)
Quarter: 2010Q3

REPORT INFORMATION
  Report Type: 
  Country: None (occurrence: None)
  Receive Date: 20100715
  Receipt Date: 20100712
  Transmission Date: 20110219
  Serious: Yes (Life-Threatening)
  Sender: FDA-Public Use
  Company Number: US-MERCK-1007USA01278

PATIENT
  Age: 35 Year
  Sex: Female

DRUGS (4)
  1. MAXALT [Suspect]
     Indication: MIGRAINE
     Route: 048
  2. MAXALT [Suspect]
     Route: 048
     Dates: start: 20100704, end: 20100705
  3. ASPIRIN [Concomitant]
     Route: 065
  4. ALDARA [Concomitant]
     Route: 065

REACTIONS (1)
  - ERYTHEMA MULTIFORME [None]
